FAERS Safety Report 6817085-5 (Version None)
Quarter: 2010Q3

REPORT INFORMATION
  Report Type: 
  Country: None (occurrence: None)
  Receive Date: 20100706
  Receipt Date: 20100625
  Transmission Date: 20110219
  Serious: Yes (Other)
  Sender: FDA-Public Use
  Company Number: GB-ASTRAZENECA-2010SE22386

PATIENT
  Age: 66 Year
  Sex: Female
  Weight: 65 kg

DRUGS (6)
  1. OMEPRAZOLE [Suspect]
     Indication: PANCREATITIS
     Route: 048
     Dates: end: 20090101
  2. RABEPRAZOLE SODIUM [Suspect]
     Indication: HIATUS HERNIA
     Route: 048
     Dates: start: 20090101, end: 20100301
  3. ATENOLOL [Concomitant]
     Indication: HYPERTENSION
     Route: 048
     Dates: start: 20050101
  4. ALFACALCIDOL [Concomitant]
     Indication: HYPOCALCAEMIA
     Route: 048
     Dates: start: 20050101
  5. CALCICHEW [Concomitant]
     Indication: HYPOCALCAEMIA
     Route: 048
     Dates: start: 20050101
  6. PREMARIN [Concomitant]
     Indication: HORMONE REPLACEMENT THERAPY
     Route: 048
     Dates: start: 20050101, end: 20090901

REACTIONS (1)
  - HYPOMAGNESAEMIA [None]
